FAERS Safety Report 23686067 (Version 1)
Quarter: 2024Q1

REPORT INFORMATION
  Report Type: Spontaneous
  Country: DE (occurrence: DE)
  Receive Date: 20240329
  Receipt Date: 20240329
  Transmission Date: 20240410
  Serious: Yes (Other)
  Sender: FDA-Public Use
  Company Number: DE-SUN PHARMACEUTICAL INDUSTRIES LTD-2024RR-439061

PATIENT
  Age: 59 Year
  Sex: Male
  Weight: 83 kg

DRUGS (1)
  1. CIPROFLOXACIN [Suspect]
     Active Substance: CIPROFLOXACIN
     Indication: Diverticulitis
     Dosage: 750 MILLIGRAM, BID, PLANNED FOR 10 DAYS (PREMATURELY STOPPED)
     Route: 048
     Dates: start: 20120112, end: 20120115

REACTIONS (8)
  - Hallucination [Recovered/Resolved]
  - Altered state of consciousness [Recovered/Resolved]
  - Polyneuropathy [Recovered/Resolved with Sequelae]
  - Anxiety disorder [Recovered/Resolved]
  - Asthenia [Recovered/Resolved with Sequelae]
  - Gait disturbance [Recovered/Resolved with Sequelae]
  - Gait disturbance [Recovered/Resolved with Sequelae]
  - Tendonitis [Recovered/Resolved]

NARRATIVE: CASE EVENT DATE: 20120114
